FAERS Safety Report 5339269-8 (Version None)
Quarter: 2007Q2

REPORT INFORMATION
  Report Type: 
  Country: None (occurrence: None)
  Receive Date: 20070525
  Receipt Date: 20070515
  Transmission Date: 20071010
  Serious: Yes (Death, Other)
  Sender: FDA-Public Use
  Company Number: 16520

PATIENT
  Age: 43 Year
  Sex: Female

DRUGS (3)
  1. EPIRUBICIN [Suspect]
     Indication: BREAST CANCER
  2. FLUOROURACIL [Suspect]
     Indication: BREAST CANCER
  3. CYCLOPHOSPHAMIDE [Suspect]
     Indication: BREAST CANCER

REACTIONS (1)
  - ACUTE MYELOID LEUKAEMIA [None]
